APPROVED DRUG PRODUCT: CANGRELOR
Active Ingredient: CANGRELOR
Strength: 50MG/VIAL
Dosage Form/Route: POWDER;INTRAVENOUS
Application: A213551 | Product #001 | TE Code: AP
Applicant: GLAND PHARMA LTD
Approved: Aug 11, 2025 | RLD: No | RS: No | Type: RX